FAERS Safety Report 14280614 (Version 2)
Quarter: 2018Q1

REPORT INFORMATION
  Report Type: Report from Study
  Country: None (occurrence: US)
  Receive Date: 20171213
  Receipt Date: 20180314
  Transmission Date: 20180508
  Serious: Yes (Hospitalization, Other)
  Sender: FDA-Public Use
  Company Number: US-ABBVIE-17K-163-2183034-00

PATIENT
  Age: 70 Year
  Sex: Female
  Weight: 84.44 kg

DRUGS (3)
  1. HUMIRA [Suspect]
     Active Substance: ADALIMUMAB
     Indication: PSORIATIC ARTHROPATHY
  2. MELOXICAM. [Suspect]
     Active Substance: MELOXICAM
     Indication: PRODUCT USED FOR UNKNOWN INDICATION
     Route: 065
  3. HUMIRA [Suspect]
     Active Substance: ADALIMUMAB
     Indication: PSORIASIS
     Route: 058
     Dates: start: 2015, end: 201711

REACTIONS (12)
  - Pain in extremity [Recovered/Resolved]
  - Infusion site swelling [Not Recovered/Not Resolved]
  - Chills [Recovered/Resolved]
  - Adverse drug reaction [Unknown]
  - Feeling cold [Recovered/Resolved]
  - Infusion site infection [Not Recovered/Not Resolved]
  - Gastrointestinal haemorrhage [Recovering/Resolving]
  - Dyspnoea [Recovered/Resolved]
  - Transfusion [Unknown]
  - Infusion site erythema [Not Recovered/Not Resolved]
  - Injection site pain [Unknown]
  - Infusion site pain [Not Recovered/Not Resolved]

NARRATIVE: CASE EVENT DATE: 201711
